FAERS Safety Report 6667978-7 (Version None)
Quarter: 2010Q2

REPORT INFORMATION
  Report Type: 
  Country: None (occurrence: None)
  Receive Date: 20100401
  Receipt Date: 20100322
  Transmission Date: 20101027
  Serious: Yes (Hospitalization)
  Sender: FDA-Public Use
  Company Number: B0546096A

PATIENT
  Age: 89 Year
  Sex: Female

DRUGS (1)
  1. PAROXETINE HCL [Suspect]
     Indication: ANXIETY
     Dosage: 20 MG / PER DAY / ORAL
     Route: 048
     Dates: start: 20080201, end: 20080304

REACTIONS (15)
  - ACTIVATION SYNDROME [None]
  - AKATHISIA [None]
  - AUTONOMIC NERVOUS SYSTEM IMBALANCE [None]
  - CEREBRAL ATROPHY [None]
  - COGNITIVE DISORDER [None]
  - CONSTIPATION [None]
  - INSOMNIA [None]
  - IRRITABILITY [None]
  - LOGORRHOEA [None]
  - MANIA [None]
  - MUSCLE RIGIDITY [None]
  - NERVOUSNESS [None]
  - ORTHOSTATIC HYPOTENSION [None]
  - RESTLESSNESS [None]
  - SYNCOPE [None]
